FAERS Safety Report 13691717 (Version 1)
Quarter: 2017Q2

REPORT INFORMATION
  Report Type: Spontaneous
  Country: US (occurrence: DK)
  Receive Date: 20170626
  Receipt Date: 20170626
  Transmission Date: 20170830
  Serious: Yes (Other)
  Sender: FDA-Public Use
  Company Number: DK-ALLERGAN-1724687US

PATIENT
  Sex: Female

DRUGS (1)
  1. LEVONORGESTREL UNK [Suspect]
     Active Substance: LEVONORGESTREL
     Indication: PRODUCT USED FOR UNKNOWN INDICATION
     Dosage: 52 MG
     Route: 015

REACTIONS (1)
  - Idiopathic intracranial hypertension [Unknown]
